APPROVED DRUG PRODUCT: CIPROFLOXACIN HYDROCHLORIDE
Active Ingredient: CIPROFLOXACIN HYDROCHLORIDE
Strength: EQ 500MG BASE
Dosage Form/Route: TABLET;ORAL
Application: A076426 | Product #003
Applicant: PLIVA INC
Approved: Jun 15, 2005 | RLD: No | RS: No | Type: DISCN